APPROVED DRUG PRODUCT: TRIAVIL 4-50
Active Ingredient: AMITRIPTYLINE HYDROCHLORIDE; PERPHENAZINE
Strength: 50MG;4MG **Federal Register determination that product was not discontinued or withdrawn for safety or effectiveness reasons**
Dosage Form/Route: TABLET;ORAL
Application: N014715 | Product #006
Applicant: NEW RIVER PHARMACEUTICALS INC
Approved: Approved Prior to Jan 1, 1982 | RLD: No | RS: No | Type: DISCN